FAERS Safety Report 5201328-8 (Version None)
Quarter: 2007Q1

REPORT INFORMATION
  Report Type: 
  Country: None (occurrence: None)
  Receive Date: 20070108
  Receipt Date: 20070103
  Transmission Date: 20070707
  Serious: Yes (Other)
  Sender: FDA-Public Use
  Company Number: US-BRISTOL-MYERS SQUIBB COMPANY-13625090

PATIENT
  Age: 79 Year
  Sex: Female

DRUGS (11)
  1. DASATINIB [Suspect]
     Indication: CHRONIC MYELOID LEUKAEMIA
     Dates: start: 20050629, end: 20061214
  2. FERROUS GLUCONATE [Concomitant]
     Dates: start: 20051027
  3. FOLIC ACID [Concomitant]
     Dates: start: 20040101
  4. NEXIUM [Concomitant]
     Dates: start: 20020101
  5. LEVOXYL [Concomitant]
     Dates: start: 19980101
  6. FOSAMAX [Concomitant]
     Dates: start: 20010101
  7. LASIX [Concomitant]
     Dates: start: 20040101
  8. CALCIUM + VITAMIN D [Concomitant]
     Dates: start: 19970101
  9. MULTI-VITAMIN [Concomitant]
     Dates: start: 19850101
  10. EPOETIN ALFA [Concomitant]
     Dates: start: 20050810
  11. CLARITIN [Concomitant]
     Dates: start: 20060518

REACTIONS (1)
  - PULMONARY FIBROSIS [None]
